FAERS Safety Report 9570576 (Version 1)
Quarter: 2013Q4

REPORT INFORMATION
  Report Type: Report from Study
  Country: BR (occurrence: BR)
  Receive Date: 20131001
  Receipt Date: 20131001
  Transmission Date: 20140711
  Serious: Yes (Other)
  Sender: FDA-Public Use
  Company Number: BR-ROCHE-1280380

PATIENT
  Sex: 0

DRUGS (4)
  1. MYCOPHENOLATE MOFETIL [Suspect]
     Indication: PROPHYLAXIS AGAINST TRANSPLANT REJECTION
     Route: 065
  2. MYCOPHENOLATE SODIUM [Suspect]
     Indication: PROPHYLAXIS AGAINST TRANSPLANT REJECTION
     Route: 065
  3. TACROLIMUS [Concomitant]
     Indication: PROPHYLAXIS AGAINST TRANSPLANT REJECTION
     Dosage: 0.1-0.15 MG/KG/DOSE
     Route: 065
  4. PREDNISONE [Concomitant]
     Indication: PROPHYLAXIS AGAINST TRANSPLANT REJECTION
     Dosage: 0.5 MG/KG/DAY, WITH A MAXIMUM DOSE OF 30 MG/DAY
     Route: 065

REACTIONS (19)
  - Bone marrow disorder [Unknown]
  - Gastrointestinal disorder [Unknown]
  - Infection [Unknown]
  - Herpes oesophagitis [Unknown]
  - Oesophageal candidiasis [Unknown]
  - Urinary tract infection bacterial [Unknown]
  - Pneumonia bacterial [Unknown]
  - Soft tissue infection [Unknown]
  - Herpes virus infection [Unknown]
  - Varicella [Unknown]
  - Neurological infection [Unknown]
  - Cytomegalovirus infection [Unknown]
  - Human polyomavirus infection [Unknown]
  - Oral candidiasis [Unknown]
  - Urinary tract infection fungal [Unknown]
  - Cryptococcosis [Unknown]
  - Blastomycosis [Unknown]
  - Phaehyphomycosis [Unknown]
  - Tuberculosis [Unknown]
